FAERS Safety Report 9831115 (Version 1)
Quarter: 2014Q1

REPORT INFORMATION
  Report Type: Report from Study
  Country: US (occurrence: US)
  Receive Date: 20140121
  Receipt Date: 20140121
  Transmission Date: 20141002
  Serious: Yes (Other)
  Sender: FDA-Public Use
  Company Number: US-ROCHE-1332280

PATIENT
  Age: 47 Year
  Sex: Female
  Weight: 60.83 kg

DRUGS (13)
  1. CELLCEPT [Suspect]
     Indication: STIFF PERSON SYNDROME
     Dosage: 1 TABLET BY MOUTH, 90 DAYS
     Route: 048
     Dates: start: 201304
  2. CELLCEPT [Suspect]
     Indication: CEREBELLAR ATAXIA
  3. RIVOTRIL [Suspect]
     Indication: PRODUCT USED FOR UNKNOWN INDICATION
     Route: 048
     Dates: start: 20120728
  4. VALIUM [Suspect]
     Indication: PRODUCT USED FOR UNKNOWN INDICATION
     Dosage: TAKE 1 TAB IN THE MORNING AND 1 TAB AT BEDTIME
     Route: 048
     Dates: start: 20121127
  5. PREDNISONE [Concomitant]
     Dosage: THEN STARTED TO TAPER SLOWLY
     Route: 065
     Dates: start: 201210, end: 201311
  6. MULTIGENICS FORMULA [Concomitant]
  7. SYNTHROID [Concomitant]
  8. PAXIL [Concomitant]
  9. VITAMIN B12 [Concomitant]
  10. HUMALOG [Concomitant]
  11. LANTUS [Concomitant]
  12. ZOCOR [Concomitant]
  13. FERROUS SULPHATE [Concomitant]

REACTIONS (13)
  - Tachycardia [Unknown]
  - Encephalitis autoimmune [Unknown]
  - Dysarthria [Not Recovered/Not Resolved]
  - Cerebellar syndrome [Unknown]
  - Ataxia [Unknown]
  - Hyperreflexia [Unknown]
  - Diabetes mellitus [Unknown]
  - Weight increased [Unknown]
  - Skin papilloma [Unknown]
  - Myopathy [Unknown]
  - Dyspnoea [Unknown]
  - Speech disorder [Unknown]
  - Asthenia [Unknown]
